FAERS Safety Report 6065584-9 (Version None)
Quarter: 2009Q1

REPORT INFORMATION
  Report Type: 
  Country: None (occurrence: None)
  Receive Date: 20090204
  Receipt Date: 20090202
  Transmission Date: 20090719
  Serious: No
  Sender: FDA-Public Use
  Company Number: US-B.I. PHARMACEUTICALS,INC./RIDGEFIELD-2009-BP-00725BP

PATIENT
  Age: 5 Year
  Sex: Male
  Weight: 21 kg

DRUGS (3)
  1. CATAPRES-TTS-1 [Suspect]
     Indication: DRUG WITHDRAWAL SYNDROME
     Dosage: .05MG
     Route: 061
     Dates: start: 20081201
  2. METHADONE HCL [Concomitant]
     Indication: DRUG WITHDRAWAL SYNDROME
     Dates: start: 20081020
  3. ATIVAN [Concomitant]
     Dates: start: 20081010

REACTIONS (6)
  - BRADYCARDIA [None]
  - DRUG INEFFECTIVE [None]
  - HYPOTENSION [None]
  - SOMNOLENCE [None]
  - WITHDRAWAL SYNDROME [None]
  - WRONG TECHNIQUE IN DRUG USAGE PROCESS [None]
